FAERS Safety Report 17069959 (Version 1)
Quarter: 2019Q4

REPORT INFORMATION
  Report Type: Spontaneous
  Country: PT (occurrence: PT)
  Receive Date: 20191125
  Receipt Date: 20191125
  Transmission Date: 20200122
  Serious: Yes (Hospitalization, Other)
  Sender: FDA-Public Use
  Company Number: PT-ACCORD-162367

PATIENT
  Age: 71 Year
  Sex: Female

DRUGS (1)
  1. METHOTREXATE. [Suspect]
     Active Substance: METHOTREXATE
     Indication: PRODUCT USED FOR UNKNOWN INDICATION
     Dosage: FOR 7 YEARS

REACTIONS (4)
  - Mucocutaneous ulceration [Recovered/Resolved]
  - Epstein-Barr virus infection [Recovered/Resolved]
  - Herpes simplex [Recovered/Resolved]
  - Acute kidney injury [Unknown]
